FAERS Safety Report 6214041-5 (Version None)
Quarter: 2009Q2

REPORT INFORMATION
  Report Type: 
  Country: None (occurrence: None)
  Receive Date: 20090601
  Receipt Date: 20090601
  Transmission Date: 20091009
  Serious: Yes (Other)
  Sender: FDA-Public Use
  Company Number: None

PATIENT
  Age: 30 Year
  Sex: Female
  Weight: 52.1637 kg

DRUGS (1)
  1. CEFUROXIME AXETIL [Suspect]
     Indication: ARTHROPOD BITE
     Dosage: 1 TABLET TWICE A DAY PO
     Route: 048
     Dates: start: 20090526, end: 20090527

REACTIONS (7)
  - ABDOMINAL PAIN UPPER [None]
  - ASTHENIA [None]
  - PAIN [None]
  - PHOTOPHOBIA [None]
  - PYREXIA [None]
  - SOMNOLENCE [None]
  - VOMITING [None]
